FAERS Safety Report 8023347-9 (Version None)
Quarter: 2012Q1

REPORT INFORMATION
  Report Type: 
  Country: None (occurrence: None)
  Receive Date: 20120104
  Receipt Date: 20120103
  Transmission Date: 20120608
  Serious: Yes (Hospitalization)
  Sender: FDA-Public Use
  Company Number: AU-ABBOTT-11P-008-0723467-00

PATIENT
  Age: 81 Year
  Sex: Male
  Weight: 82 kg

DRUGS (2)
  1. SIMVASTATIN [Interacting]
     Indication: PRODUCT USED FOR UNKNOWN INDICATION
     Dates: end: 20101026
  2. CLARITHROMYCIN [Suspect]
     Indication: PRODUCT USED FOR UNKNOWN INDICATION
     Dosage: 250MG 2 TIMES
     Route: 048
     Dates: start: 20101014, end: 20101023

REACTIONS (2)
  - RHABDOMYOLYSIS [None]
  - MYALGIA [None]
